FAERS Safety Report 11404765 (Version 4)
Quarter: 2020Q1

REPORT INFORMATION
  Report Type: Report from Study
  Country: US (occurrence: US)
  Receive Date: 20150821
  Receipt Date: 20200220
  Transmission Date: 20200409
  Serious: Yes (Other)
  Sender: FDA-Public Use
  Company Number: PHHY2015US028418

PATIENT
  Age: 30 Year
  Sex: Male

DRUGS (1)
  1. GILENYA [Suspect]
     Active Substance: FINGOLIMOD HYDROCHLORIDE
     Indication: MULTIPLE SCLEROSIS
     Dosage: UNK, QD
     Route: 048

REACTIONS (5)
  - Dry eye [Not Recovered/Not Resolved]
  - Aura [Unknown]
  - Vision blurred [Not Recovered/Not Resolved]
  - Vitreous detachment [Not Recovered/Not Resolved]
  - Migraine with aura [Recovered/Resolved]

NARRATIVE: CASE EVENT DATE: 20150122
